FAERS Safety Report 4393289-9 (Version None)
Quarter: 2004Q3

REPORT INFORMATION
  Report Type: 
  Country: None (occurrence: None)
  Receive Date: 20040701
  Receipt Date: 20040616
  Transmission Date: 20050211
  Serious: Yes (Life-Threatening, Hospitalization, Disabling, Other)
  Sender: FDA-Public Use
  Company Number: DE_040613782

PATIENT
  Age: 50 Year
  Sex: Male

DRUGS (4)
  1. GEMZAR [Suspect]
     Indication: PANCREATIC CARCINOMA
     Dosage: 1000 MG/M2
     Dates: start: 20040317, end: 20040428
  2. ZOFRAN [Concomitant]
  3. KREON (PANCREATIN) [Concomitant]
  4. CIPROFLOXACIN [Concomitant]

REACTIONS (18)
  - ASTHENIA [None]
  - ATAXIA [None]
  - BALANCE DISORDER [None]
  - CHILLS [None]
  - DIPLOPIA [None]
  - DIZZINESS [None]
  - GAIT DISTURBANCE [None]
  - HERPES VIRUS INFECTION [None]
  - INFECTION [None]
  - INFUSION RELATED REACTION [None]
  - LEUKOENCEPHALOMYELITIS [None]
  - LUNG INFILTRATION [None]
  - NUCLEAR MAGNETIC RESONANCE IMAGING BRAIN ABNORMAL [None]
  - PARANEOPLASTIC SYNDROME [None]
  - PYREXIA [None]
  - QUADRIPLEGIA [None]
  - RESPIRATORY FAILURE [None]
  - SINUSITIS [None]
